FAERS Safety Report 11517165 (Version 1)
Quarter: 2015Q3

REPORT INFORMATION
  Report Type: Spontaneous
  Country: US (occurrence: US)
  Receive Date: 20150917
  Receipt Date: 20150917
  Transmission Date: 20151125
  Serious: No
  Sender: FDA-Public Use
  Company Number: US-BAYER-2015-418723

PATIENT
  Age: 41 Year
  Sex: Female
  Weight: 73.92 kg

DRUGS (3)
  1. MIRALAX [Suspect]
     Active Substance: POLYETHYLENE GLYCOL 3350
     Indication: HAEMORRHOID OPERATION
     Dosage: 17 G, QD
     Route: 048
     Dates: start: 201504
  2. MIRALAX [Suspect]
     Active Substance: POLYETHYLENE GLYCOL 3350
     Indication: CONSTIPATION
  3. METAMUCIL [Concomitant]
     Active Substance: PLANTAGO SEED

REACTIONS (4)
  - Painful defaecation [Not Recovered/Not Resolved]
  - Product use issue [None]
  - Off label use [None]
  - Weight decreased [None]

NARRATIVE: CASE EVENT DATE: 201504
